FAERS Safety Report 17844764 (Version 1)
Quarter: 2020Q2

REPORT INFORMATION
  Report Type: Spontaneous
  Country: US (occurrence: US)
  Receive Date: 20200601
  Receipt Date: 20200601
  Transmission Date: 20200714
  Serious: No
  Sender: FDA-Public Use
  Company Number: US-SUN PHARMACEUTICAL INDUSTRIES LTD-2019R1-214808

PATIENT
  Age: 74 Year
  Sex: Female

DRUGS (2)
  1. BROMSITE [Suspect]
     Active Substance: BROMFENAC SODIUM
     Dosage: 2 DROPS, QD
     Route: 047
  2. BROMSITE [Suspect]
     Active Substance: BROMFENAC SODIUM
     Indication: PRODUCT USED FOR UNKNOWN INDICATION
     Dosage: 2 DROPS, QD
     Route: 047
     Dates: start: 20190426

REACTIONS (2)
  - Product dose omission [Unknown]
  - Off label use [Unknown]

NARRATIVE: CASE EVENT DATE: 2019
